FAERS Safety Report 5296108-1 (Version None)
Quarter: 2007Q2

REPORT INFORMATION
  Report Type: 
  Country: None (occurrence: None)
  Receive Date: 20070413
  Receipt Date: 20070404
  Transmission Date: 20071010
  Serious: Yes (Other)
  Sender: FDA-Public Use
  Company Number: FR-GILEAD-2007-0011818

PATIENT
  Sex: Female
  Weight: 55 kg

DRUGS (6)
  1. TRUVADA [Suspect]
     Indication: HIV INFECTION
     Route: 048
  2. KALETRA [Concomitant]
     Route: 048
     Dates: start: 20070110
  3. FUZEON [Concomitant]
     Route: 058
     Dates: start: 20070110
  4. MOTILIUM [Concomitant]
  5. PRIMPERAN INJ [Concomitant]
  6. LOVENOX [Concomitant]

REACTIONS (3)
  - EOSINOPHILIA [None]
  - METABOLIC ACIDOSIS [None]
  - RENAL FAILURE [None]
